FAERS Safety Report 17727024 (Version 3)
Quarter: 2021Q2

REPORT INFORMATION
  Report Type: Spontaneous
  Country: US (occurrence: US)
  Receive Date: 20200430
  Receipt Date: 20210609
  Transmission Date: 20210716
  Serious: Yes (Death, Other)
  Sender: FDA-Public Use
  Company Number: US-ASTRAZENECA-2020SE54859

PATIENT
  Age: 21270 Day
  Sex: Male
  Weight: 120.2 kg

DRUGS (36)
  1. NEXIUM [Suspect]
     Active Substance: ESOMEPRAZOLE MAGNESIUM
     Route: 048
     Dates: start: 2001, end: 2014
  2. ZANTAC [Concomitant]
     Active Substance: RANITIDINE HYDROCHLORIDE
  3. GENTAMICIN. [Concomitant]
     Active Substance: GENTAMICIN
  4. XANAX [Concomitant]
     Active Substance: ALPRAZOLAM
  5. IMODIUM [Concomitant]
     Active Substance: LOPERAMIDE HYDROCHLORIDE
  6. LORTABHYDROCODONE [Concomitant]
  7. INSULIN [Concomitant]
     Active Substance: INSULIN NOS
  8. VITAMIN B12 [Concomitant]
     Active Substance: CYANOCOBALAMIN
  9. FINASTERIDE. [Concomitant]
     Active Substance: FINASTERIDE
  10. ONDANSETRON [Concomitant]
     Active Substance: ONDANSETRON
  11. PHENERGAN [Concomitant]
     Active Substance: PROMETHAZINE HYDROCHLORIDE
  12. VITAMIN D [Concomitant]
     Active Substance: VITAMIN D NOS
  13. ALLOPURINOL. [Concomitant]
     Active Substance: ALLOPURINOL
  14. IBUPROFEN. [Concomitant]
     Active Substance: IBUPROFEN
  15. TUMS [Concomitant]
     Active Substance: CALCIUM CARBONATE
  16. SYNTHROID [Concomitant]
     Active Substance: LEVOTHYROXINE SODIUM
  17. POLYETHYLENE GLYCOL [Concomitant]
     Active Substance: POLYETHYLENE GLYCOLS
  18. NEXIUM [Suspect]
     Active Substance: ESOMEPRAZOLE MAGNESIUM
     Route: 048
     Dates: start: 200002, end: 201706
  19. DOCUSATE SODIUM. [Concomitant]
     Active Substance: DOCUSATE SODIUM
  20. PROTONIX [Suspect]
     Active Substance: PANTOPRAZOLE SODIUM
     Route: 065
     Dates: start: 200002, end: 201706
  21. SIMVASTATIN. [Concomitant]
     Active Substance: SIMVASTATIN
  22. COLACE?DOCUSATE SODIUM [Concomitant]
  23. NORCO?HYDROCODONE BITARTRATE [Concomitant]
  24. BENADRYL [Concomitant]
     Active Substance: DIPHENHYDRAMINE HYDROCHLORIDE
  25. NEXIUM 24HR [Suspect]
     Active Substance: ESOMEPRAZOLE MAGNESIUM
     Route: 048
     Dates: start: 200002, end: 201706
  26. PEPCID [Concomitant]
     Active Substance: FAMOTIDINE
  27. CALCIUM ACETATE. [Concomitant]
     Active Substance: CALCIUM ACETATE
  28. CLONIDINE. [Concomitant]
     Active Substance: CLONIDINE
  29. NITROGLYCERIN. [Concomitant]
     Active Substance: NITROGLYCERIN
  30. PROTONIX [Suspect]
     Active Substance: PANTOPRAZOLE SODIUM
     Route: 065
     Dates: start: 2000, end: 2014
  31. ALFUZOSIN [Concomitant]
     Active Substance: ALFUZOSIN
  32. EZETIMIBE. [Concomitant]
     Active Substance: EZETIMIBE
  33. FOLIC ACID. [Concomitant]
     Active Substance: FOLIC ACID
  34. RENVELA [Concomitant]
     Active Substance: SEVELAMER CARBONATE
  35. LANTUS [Concomitant]
     Active Substance: INSULIN GLARGINE
  36. PREGABALIN. [Concomitant]
     Active Substance: PREGABALIN

REACTIONS (7)
  - End stage renal disease [Unknown]
  - Chronic kidney disease-mineral and bone disorder [Unknown]
  - Hyperparathyroidism secondary [Unknown]
  - Renal failure [Unknown]
  - Tubulointerstitial nephritis and uveitis syndrome [Unknown]
  - Chronic kidney disease [Unknown]
  - Nephrogenic anaemia [Unknown]

NARRATIVE: CASE EVENT DATE: 20160512
